FAERS Safety Report 8030628-1 (Version None)
Quarter: 2012Q1

REPORT INFORMATION
  Report Type: 
  Country: None (occurrence: None)
  Receive Date: 20120109
  Receipt Date: 20120105
  Transmission Date: 20120608
  Serious: Yes (Other)
  Sender: FDA-Public Use
  Company Number: US-BAYER-2011-112048

PATIENT
  Age: 36 Year
  Sex: Female

DRUGS (2)
  1. SORAFENIB (RAF KINASE INHIBITOR) [Suspect]
     Indication: DESMOID TUMOUR
     Dosage: 200 MG, QD
     Dates: start: 20111109
  2. SORAFENIB (RAF KINASE INHIBITOR) [Suspect]
     Dosage: 400 MG, QD
     Route: 048
     Dates: start: 20110101

REACTIONS (12)
  - JOINT SWELLING [None]
  - ARTHRALGIA [None]
  - VOMITING [None]
  - HYPERTENSION [None]
  - BLOOD PRESSURE DIASTOLIC INCREASED [None]
  - MENORRHAGIA [None]
  - NAUSEA [None]
  - PAIN IN EXTREMITY [None]
  - HAEMATEMESIS [None]
  - BLOOD POTASSIUM DECREASED [None]
  - RASH PAPULAR [None]
  - OEDEMA PERIPHERAL [None]
